FAERS Safety Report 6899107-9 (Version None)
Quarter: 2010Q3

REPORT INFORMATION
  Report Type: 
  Country: None (occurrence: None)
  Receive Date: 20100802
  Receipt Date: 20080215
  Transmission Date: 20110219
  Serious: No
  Sender: FDA-Public Use
  Company Number: US-PFIZER INC-2007100233

PATIENT
  Sex: Male
  Weight: 92.99 kg

DRUGS (4)
  1. LYRICA [Suspect]
     Indication: DIABETIC NEUROPATHY
     Route: 048
     Dates: start: 20071119
  2. ACTOS [Concomitant]
  3. VALSARTAN [Concomitant]
  4. AMARYL [Concomitant]

REACTIONS (1)
  - COGNITIVE DISORDER [None]
